FAERS Safety Report 4519462-4 (Version None)
Quarter: 2004Q4

REPORT INFORMATION
  Report Type: 
  Country: None (occurrence: None)
  Receive Date: 20041202
  Receipt Date: 20041118
  Transmission Date: 20050328
  Serious: Yes (Death, Life-Threatening)
  Sender: FDA-Public Use
  Company Number: 2004-00649

PATIENT
  Age: 70 Year
  Sex: Male

DRUGS (1)
  1. VELCADE [Suspect]
     Indication: MULTIPLE MYELOMA

REACTIONS (6)
  - LYMPHADENOPATHY [None]
  - RASH [None]
  - RENAL FAILURE [None]
  - SKIN DISORDER [None]
  - SKIN NODULE [None]
  - THERAPY NON-RESPONDER [None]
